FAERS Safety Report 4929707-4 (Version None)
Quarter: 2006Q1

REPORT INFORMATION
  Report Type: 
  Country: None (occurrence: None)
  Receive Date: 20060301
  Receipt Date: 20050621
  Transmission Date: 20060701
  Serious: Yes (Hospitalization)
  Sender: FDA-Public Use
  Company Number: US-MERCK-0506USA03210

PATIENT
  Age: 49 Year
  Sex: Male

DRUGS (2)
  1. VIOXX [Suspect]
     Route: 048
  2. ASPIRIN [Concomitant]
     Route: 048

REACTIONS (4)
  - ACUTE MYOCARDIAL INFARCTION [None]
  - ANGINA UNSTABLE [None]
  - SLEEP APNOEA SYNDROME [None]
  - VENTRICULAR TACHYCARDIA [None]
